FAERS Safety Report 17321549 (Version 3)
Quarter: 2021Q1

REPORT INFORMATION
  Report Type: Spontaneous
  Country: ES (occurrence: ES)
  Receive Date: 20200127
  Receipt Date: 20210104
  Transmission Date: 20210419
  Serious: Yes (Hospitalization, Other)
  Sender: FDA-Public Use
  Company Number: ES-AUROBINDO-AUR-APL-2020-003446

PATIENT
  Age: 73 Year
  Sex: Female

DRUGS (3)
  1. FLUOXETINE [Suspect]
     Active Substance: FLUOXETINE HYDROCHLORIDE
     Indication: DEPRESSION
     Dosage: 20 MILLIGRAM, ONCE A DAY
     Route: 065
  2. PARACETAMOL [Concomitant]
     Active Substance: ACETAMINOPHEN
     Indication: BACK PAIN
     Dosage: 1 GRAM
     Route: 065
  3. TRAMADOL+PARACETAMOL 37.5/325MG [Suspect]
     Active Substance: ACETAMINOPHEN\TRAMADOL
     Indication: BACK PAIN
     Dosage: 1 DOSAGE FORM, 3 TIMES A DAY
     Route: 065

REACTIONS (3)
  - Hypertensive crisis [Unknown]
  - Bundle branch block left [Unknown]
  - Hyponatraemia [Recovered/Resolved]
